FAERS Safety Report 21942805 (Version 3)
Quarter: 2023Q1

REPORT INFORMATION
  Report Type: Spontaneous
  Country: US (occurrence: US)
  Receive Date: 20230202
  Receipt Date: 20230314
  Transmission Date: 20230417
  Serious: No
  Sender: FDA-Public Use
  Company Number: US-GSKCCFUS-Case-01615010_AE-91214

PATIENT
  Age: 67 Year
  Sex: Male

DRUGS (2)
  1. NUCALA [Suspect]
     Active Substance: MEPOLIZUMAB
     Indication: Product used for unknown indication
     Dosage: 300 MG, Z, EVERY 4 WEEKS 100MG/ML 1X1ML
     Dates: start: 202212
  2. NUCALA [Suspect]
     Active Substance: MEPOLIZUMAB
     Dosage: 200 MG, Z, WAS ABLE TO GIVE HIMSELF ONLY 200 MG
     Dates: start: 20230127

REACTIONS (2)
  - Underdose [Unknown]
  - Product complaint [Unknown]

NARRATIVE: CASE EVENT DATE: 20230127
